FAERS Safety Report 10018349 (Version 1)
Quarter: 2014Q1

REPORT INFORMATION
  Report Type: Spontaneous
  Country: US (occurrence: US)
  Receive Date: 20140318
  Receipt Date: 20140318
  Transmission Date: 20141002
  Serious: No
  Sender: FDA-Public Use
  Company Number: US-PFIZER INC-2014075652

PATIENT
  Age: 76 Year
  Sex: Female
  Weight: 70.3 kg

DRUGS (1)
  1. LIPITOR [Suspect]
     Indication: BLOOD CHOLESTEROL DECREASED
     Dosage: 40 MG, DAILY

REACTIONS (5)
  - Myalgia [Recovered/Resolved]
  - Muscle spasticity [Recovered/Resolved]
  - Muscle spasms [Recovered/Resolved]
  - Bedridden [Recovered/Resolved]
  - Joint range of motion decreased [Recovered/Resolved]
